FAERS Safety Report 7097152-4 (Version None)
Quarter: 2010Q4

REPORT INFORMATION
  Report Type: 
  Country: None (occurrence: None)
  Receive Date: 20101111
  Receipt Date: 20100330
  Transmission Date: 20110411
  Serious: No
  Sender: FDA-Public Use
  Company Number: US-KINGPHARMUSA00001-K201000388

PATIENT
  Age: 60 Year
  Sex: Male
  Weight: 85.714 kg

DRUGS (10)
  1. EMBEDA [Suspect]
     Indication: FIBROMYALGIA
     Dosage: 20 MG, QHS
     Dates: start: 20100224
  2. CRESTOR [Concomitant]
     Indication: BLOOD CHOLESTEROL INCREASED
  3. OXYCODONE HCL [Concomitant]
  4. TRAMADOL HCL [Concomitant]
  5. CLONAZEPAM [Concomitant]
  6. HYOSCYAMINE [Concomitant]
  7. IMODIUM [Concomitant]
  8. AMITRIPTYLINE HCL [Concomitant]
  9. EFFEXOR [Concomitant]
  10. MULTI-VITAMINS [Concomitant]

REACTIONS (1)
  - DRUG INEFFECTIVE [None]
